FAERS Safety Report 5853632-8 (Version None)
Quarter: 2008Q3

REPORT INFORMATION
  Report Type: 
  Country: None (occurrence: None)
  Receive Date: 20080822
  Receipt Date: 20080815
  Transmission Date: 20090109
  Serious: Yes (Other)
  Sender: FDA-Public Use
  Company Number: US-ALLERGAN-0810258US

PATIENT
  Sex: Female

DRUGS (3)
  1. BOTOX [Suspect]
     Indication: HYPERHIDROSIS
     Dosage: 100 UNITS, SINGLE
     Route: 023
  2. BOTOX [Suspect]
     Dosage: UNK, SINGLE
     Route: 023
  3. BOTOX [Suspect]
     Dosage: UNK, SINGLE
     Route: 023

REACTIONS (3)
  - BACK PAIN [None]
  - DYSPNOEA [None]
  - NECK PAIN [None]
